FAERS Safety Report 24411231 (Version 1)
Quarter: 2024Q4

REPORT INFORMATION
  Report Type: Spontaneous
  Country: US (occurrence: US)
  Receive Date: 20241008
  Receipt Date: 20241008
  Transmission Date: 20250114
  Serious: No
  Sender: TORRENT
  Company Number: US-TORRENT-00013776

PATIENT
  Age: 42 Year
  Sex: Female

DRUGS (1)
  1. DICHLORPHENAMIDE [Suspect]
     Active Substance: DICHLORPHENAMIDE
     Indication: Product used for unknown indication
     Dosage: UNKNOWN
     Route: 065

REACTIONS (13)
  - Dry eye [Unknown]
  - Eye disorder [Unknown]
  - Eye irritation [Unknown]
  - Headache [Unknown]
  - Vision blurred [Unknown]
  - Dry mouth [Unknown]
  - Gingival discomfort [Unknown]
  - Arthralgia [Unknown]
  - Impaired work ability [Unknown]
  - Cough [Unknown]
  - Tremor [Recovering/Resolving]
  - Paraesthesia [Recovering/Resolving]
  - Disease recurrence [Unknown]
